FAERS Safety Report 8389259-6 (Version None)
Quarter: 2012Q2

REPORT INFORMATION
  Report Type: 
  Country: None (occurrence: None)
  Receive Date: 20120528
  Receipt Date: 20120525
  Transmission Date: 20120825
  Serious: Yes (Death, Hospitalization, Other)
  Sender: FDA-Public Use
  Company Number: PHHY2010CA45291

PATIENT
  Sex: Male

DRUGS (5)
  1. AFINITOR [Suspect]
     Indication: NEUROENDOCRINE CARCINOMA
     Dosage: 05 MG EVERY DAY
     Route: 048
     Dates: start: 20110325
  2. CHEMOTHERAPEUTICS [Concomitant]
  3. SANDOSTATIN LAR [Suspect]
     Dosage: 20 MG EVERY 4 WEEKS
     Route: 030
  4. SANDOSTATIN LAR [Suspect]
     Indication: NEUROENDOCRINE CARCINOMA
     Dosage: 30 MG, EVERY 4 WEEKS
     Route: 030
     Dates: start: 20100506
  5. SANDOSTATIN LAR [Suspect]
     Dosage: 20 MG, QMO
     Route: 030
     Dates: start: 20100704

REACTIONS (10)
  - HEPATIC PAIN [None]
  - METASTASES TO BONE [None]
  - LEUKOPENIA [None]
  - BLOOD GLUCOSE ABNORMAL [None]
  - NAUSEA [None]
  - BLOOD PRESSURE SYSTOLIC INCREASED [None]
  - PATHOLOGICAL FRACTURE [None]
  - ANAEMIA [None]
  - VOMITING [None]
  - NEOPLASM MALIGNANT [None]
